APPROVED DRUG PRODUCT: NEBUPENT
Active Ingredient: PENTAMIDINE ISETHIONATE
Strength: 300MG/VIAL
Dosage Form/Route: FOR SOLUTION;INHALATION
Application: N019887 | Product #001 | TE Code: AN
Applicant: FRESENIUS KABI USA LLC
Approved: Jun 15, 1989 | RLD: Yes | RS: Yes | Type: RX